FAERS Safety Report 10484901 (Version 2)
Quarter: 2014Q4

REPORT INFORMATION
  Report Type: Report from Study
  Country: BR (occurrence: BR)
  Receive Date: 20140930
  Receipt Date: 20141014
  Transmission Date: 20150528
  Serious: Yes (Other)
  Sender: FDA-Public Use
  Company Number: PHHY2014BR126831

PATIENT
  Age: 41 Year
  Sex: Male
  Weight: 83 kg

DRUGS (3)
  1. GABAPENTINA [Concomitant]
     Active Substance: GABAPENTIN
     Indication: BACK PAIN
     Dosage: 1 DF, DAILY
     Route: 048
  2. GILENYA [Suspect]
     Active Substance: FINGOLIMOD HYDROCHLORIDE
     Indication: MULTIPLE SCLEROSIS
     Dosage: 1 DF, DAILY
     Route: 048
     Dates: start: 201304
  3. MANTIDAN [Concomitant]
     Active Substance: AMANTADINE HYDROCHLORIDE
     Indication: BACK PAIN
     Dosage: 1 TAB, DAILY
     Route: 048

REACTIONS (5)
  - Vision blurred [Not Recovered/Not Resolved]
  - Cataract [Unknown]
  - Blindness transient [Recovered/Resolved]
  - Multiple sclerosis relapse [Recovered/Resolved]
  - Memory impairment [Not Recovered/Not Resolved]

NARRATIVE: CASE EVENT DATE: 201312
